FAERS Safety Report 4593882-4 (Version None)
Quarter: 2005Q1

REPORT INFORMATION
  Report Type: 
  Country: None (occurrence: None)
  Receive Date: 20050217
  Receipt Date: 20050207
  Transmission Date: 20050727
  Serious: Yes (Hospitalization, Disabling)
  Sender: FDA-Public Use
  Company Number: HQWYE404828AUG03

PATIENT
  Age: 62 Year
  Sex: Male
  Weight: 81.27 kg

DRUGS (14)
  1. NEUMEGA [Suspect]
     Indication: PLATELET COUNT DECREASED
     Dosage: 4200 MCG, SUBCUTANEOUS
     Route: 058
     Dates: start: 20030530, end: 20030817
  2. PROCRIT (ERYTHROPOIETIN) [Concomitant]
  3. NEULASTA [Concomitant]
  4. ZOFRAN [Concomitant]
  5. REGLAN [Concomitant]
  6. DECADRON [Concomitant]
  7. ATIVAN [Concomitant]
  8. BENADRYL [Concomitant]
  9. COMPAZINE [Concomitant]
  10. OXYCONTIN [Concomitant]
  11. LORTAB [Concomitant]
  12. TYLENOL [Concomitant]
  13. PROTONIX [Concomitant]
  14. VISTARIL [Concomitant]

REACTIONS (6)
  - BLINDNESS [None]
  - EYE OEDEMA [None]
  - LUNG NEOPLASM MALIGNANT [None]
  - MALIGNANT NEOPLASM PROGRESSION [None]
  - MEDICATION ERROR [None]
  - OPTIC NEURITIS [None]
